FAERS Safety Report 8613214-1 (Version None)
Quarter: 2012Q3

REPORT INFORMATION
  Report Type: 
  Country: None (occurrence: None)
  Receive Date: 20120822
  Receipt Date: 20120814
  Transmission Date: 20120928
  Serious: Yes (Death)
  Sender: FDA-Public Use
  Company Number: TW-BAXTER-2012BAX014733

PATIENT
  Sex: Female

DRUGS (8)
  1. DIANEAL LOW CALCIUM WITH DEXTROSE 1.5% AND CALCIUM 2.5MEQ/L [Suspect]
     Route: 033
  2. DIANEAL PD-2 W/ DEXTROSE 2.5% [Suspect]
  3. EXTRANEAL [Suspect]
     Route: 033
  4. DIANEAL PD-2 W/ DEXTROSE 2.5% [Suspect]
     Route: 033
  5. NUTRINEAL [Suspect]
  6. EXTRANEAL [Suspect]
  7. NUTRINEAL [Suspect]
     Route: 033
  8. DIANEAL LOW CALCIUM WITH DEXTROSE 1.5% AND CALCIUM 2.5MEQ/L [Suspect]

REACTIONS (1)
  - DEATH [None]
